FAERS Safety Report 15352610 (Version 1)
Quarter: 2018Q3

REPORT INFORMATION
  Report Type: Report from Study
  Country: US (occurrence: US)
  Receive Date: 20180905
  Receipt Date: 20180905
  Transmission Date: 20181010
  Serious: Yes (Hospitalization, Other)
  Sender: FDA-Public Use
  Company Number: US-SA-2018SA240692

PATIENT
  Age: 38 Year
  Sex: Female

DRUGS (12)
  1. TYSABRI [Concomitant]
     Active Substance: NATALIZUMAB
     Indication: MULTIPLE SCLEROSIS RELAPSE
     Route: 042
  2. ALEMTUZUMAB [Suspect]
     Active Substance: ALEMTUZUMAB
     Indication: MULTIPLE SCLEROSIS
     Dosage: UNK UNK, QD
     Route: 041
     Dates: start: 201806, end: 201806
  3. CYMBALTA [Concomitant]
     Active Substance: DULOXETINE HYDROCHLORIDE
     Dosage: 60 MG, QD
  4. ROXICODONE [Concomitant]
     Active Substance: OXYCODONE HYDROCHLORIDE
     Dosage: 15 MG, QID
  5. CELEBREX [Concomitant]
     Active Substance: CELECOXIB
     Dosage: UNK UNK, QD
  6. LYRICA [Concomitant]
     Active Substance: PREGABALIN
     Dosage: 300 MG, HS
  7. LINZESS [Concomitant]
     Active Substance: LINACLOTIDE
     Dosage: UNK UNK, QD
  8. NEXIUM [ESOMEPRAZOLE SODIUM] [Concomitant]
     Dosage: UNK UNK, QD
  9. FENTANYL. [Concomitant]
     Active Substance: FENTANYL
     Dosage: 37MCG EVERY 3 DAYS
  10. ZANAFLEX [Concomitant]
     Active Substance: TIZANIDINE HYDROCHLORIDE
     Dosage: 4 MG, TID
  11. LYRICA [Concomitant]
     Active Substance: PREGABALIN
     Dosage: 75 MG, QD
  12. REBIF [Concomitant]
     Active Substance: INTERFERON BETA-1A
     Indication: MULTIPLE SCLEROSIS RELAPSE

REACTIONS (17)
  - Dyspraxia [Recovering/Resolving]
  - Condition aggravated [Not Recovered/Not Resolved]
  - Noninfective encephalitis [Recovering/Resolving]
  - Immune thrombocytopenic purpura [Recovered/Resolved]
  - Fall [Recovered/Resolved]
  - Atrial fibrillation [Recovered/Resolved]
  - Asthenia [Recovered/Resolved]
  - Epistaxis [Recovered/Resolved]
  - Rash [Recovered/Resolved]
  - Cellulitis [Recovering/Resolving]
  - Blood pressure decreased [Recovered/Resolved]
  - Lymphoedema [Recovering/Resolving]
  - Platelet count decreased [Recovered/Resolved]
  - Contusion [Unknown]
  - Menorrhagia [Not Recovered/Not Resolved]
  - Petechiae [Recovered/Resolved]
  - Heart rate decreased [Recovered/Resolved]

NARRATIVE: CASE EVENT DATE: 201806
